FAERS Safety Report 7718706-5 (Version None)
Quarter: 2011Q3

REPORT INFORMATION
  Report Type: 
  Country: None (occurrence: None)
  Receive Date: 20110830
  Receipt Date: 20110818
  Transmission Date: 20111222
  Serious: Yes (Hospitalization)
  Sender: FDA-Public Use
  Company Number: DE-ELI_LILLY_AND_COMPANY-DE201108005586

PATIENT
  Age: 35 Year
  Sex: Male

DRUGS (5)
  1. LORAZEPAM [Concomitant]
     Dosage: 0.5 UNK, UNKNOWN
     Route: 065
  2. OLANZAPINE [Suspect]
     Dosage: 300 MG, EVERY 2 WEEKS
     Route: 030
     Dates: start: 20100101
  3. CLOZAPINE [Concomitant]
     Dosage: 100 UNK, UNKNOWN
     Route: 065
  4. VALPROIC ACID [Concomitant]
     Dosage: 300 UNK, UNKNOWN
     Route: 065
  5. MELPERON [Concomitant]
     Dosage: 25 UNK, UNKNOWN
     Route: 065

REACTIONS (3)
  - FATIGUE [None]
  - GAIT DISTURBANCE [None]
  - SALIVARY HYPERSECRETION [None]
